FAERS Safety Report 6484794-X (Version None)
Quarter: 2009Q4

REPORT INFORMATION
  Report Type: 
  Country: None (occurrence: None)
  Receive Date: 20091209
  Receipt Date: 20090206
  Transmission Date: 20100525
  Serious: No
  Sender: FDA-Public Use
  Company Number: A0767448A

PATIENT
  Age: 45 Year
  Sex: Female

DRUGS (2)
  1. AVANDAMET [Suspect]
     Dosage: 1TAB TWICE PER DAY
     Route: 048
     Dates: start: 20090121
  2. DIOVAN [Concomitant]

REACTIONS (4)
  - ERECTILE DYSFUNCTION [None]
  - FEELING HOT [None]
  - HEADACHE [None]
  - SEXUAL DYSFUNCTION [None]
